FAERS Safety Report 11184447 (Version 2)
Quarter: 2015Q3

REPORT INFORMATION
  Report Type: Spontaneous
  Country: US (occurrence: US)
  Receive Date: 20150612
  Receipt Date: 20150907
  Transmission Date: 20151125
  Serious: Yes (Other)
  Sender: FDA-Public Use
  Company Number: US-ASTRAZENECA-2015SE54914

PATIENT
  Sex: Female

DRUGS (25)
  1. SEROQUEL [Suspect]
     Active Substance: QUETIAPINE FUMARATE
     Indication: BIPOLAR II DISORDER
     Dosage: UNSPECIFIED, 400 MG PER DAY
     Route: 048
     Dates: start: 20140107
  2. KLONOPIN [Concomitant]
     Active Substance: CLONAZEPAM
     Indication: ANXIETY
  3. SEROQUEL [Suspect]
     Active Substance: QUETIAPINE FUMARATE
     Indication: SLEEP DISORDER
     Dosage: GENERIC
     Route: 048
     Dates: end: 20140214
  4. SEROQUEL [Suspect]
     Active Substance: QUETIAPINE FUMARATE
     Indication: BIPOLAR II DISORDER
     Dosage: GENERIC 200 MG PER DAY
     Route: 048
     Dates: start: 2014
  5. SEROQUEL [Suspect]
     Active Substance: QUETIAPINE FUMARATE
     Indication: BIPOLAR II DISORDER
     Dosage: GENERIC 400 MG PER DAY
     Route: 048
     Dates: start: 2014
  6. SEROQUEL [Suspect]
     Active Substance: QUETIAPINE FUMARATE
     Indication: SLEEP DISORDER
     Route: 048
     Dates: start: 20130122
  7. EFFEXOR [Concomitant]
     Active Substance: VENLAFAXINE HYDROCHLORIDE
  8. SEROQUEL [Suspect]
     Active Substance: QUETIAPINE FUMARATE
     Indication: SLEEP DISORDER
     Route: 048
     Dates: start: 2009, end: 20140214
  9. SEROQUEL [Suspect]
     Active Substance: QUETIAPINE FUMARATE
     Indication: BIPOLAR II DISORDER
     Route: 048
     Dates: start: 20130122
  10. SEROQUEL [Suspect]
     Active Substance: QUETIAPINE FUMARATE
     Indication: SLEEP DISORDER
     Dosage: UNSPECIFIED, 50 MG, ONE TO TWO TABLETS EVERY NIGHT AT BEDTIME
     Route: 048
     Dates: start: 20130220
  11. SEROQUEL [Suspect]
     Active Substance: QUETIAPINE FUMARATE
     Indication: SLEEP DISORDER
     Dosage: UNSPECIFIED, 400 MG PER DAY
     Route: 048
     Dates: start: 20140107
  12. SEROQUEL [Suspect]
     Active Substance: QUETIAPINE FUMARATE
     Indication: SLEEP DISORDER
     Dosage: GENERIC 200 MG PER DAY
     Route: 048
     Dates: start: 2014
  13. ZOLOFT [Concomitant]
     Active Substance: SERTRALINE HYDROCHLORIDE
     Dates: start: 2011
  14. SEROQUEL [Suspect]
     Active Substance: QUETIAPINE FUMARATE
     Indication: BIPOLAR II DISORDER
     Route: 048
     Dates: start: 2009, end: 20140214
  15. SEROQUEL [Suspect]
     Active Substance: QUETIAPINE FUMARATE
     Indication: SLEEP DISORDER
     Route: 048
     Dates: start: 20121218
  16. KLONOPIN [Concomitant]
     Active Substance: CLONAZEPAM
     Indication: DEPRESSION
  17. SEROQUEL [Suspect]
     Active Substance: QUETIAPINE FUMARATE
     Indication: BIPOLAR II DISORDER
     Dosage: UNSPECIFIED, 50 MG, ONE TO TWO TABLETS EVERY NIGHT AT BEDTIME
     Route: 048
     Dates: start: 20130220
  18. SEROQUEL [Suspect]
     Active Substance: QUETIAPINE FUMARATE
     Indication: BIPOLAR II DISORDER
     Dosage: GENERIC 50 MG PER DAY
     Route: 048
     Dates: start: 2014
  19. SEROQUEL [Suspect]
     Active Substance: QUETIAPINE FUMARATE
     Indication: SLEEP DISORDER
     Dosage: GENERIC 50 MG PER DAY
     Route: 048
     Dates: start: 2014
  20. SEROQUEL [Suspect]
     Active Substance: QUETIAPINE FUMARATE
     Indication: BIPOLAR II DISORDER
     Dosage: UNSPECIFIED,100 MG, ONE TO TWO TABLETS EVERY NIGHT AT BEDTIME
     Route: 048
     Dates: start: 20130810, end: 20131009
  21. SEROQUEL [Suspect]
     Active Substance: QUETIAPINE FUMARATE
     Indication: BIPOLAR II DISORDER
     Route: 048
     Dates: start: 20121218
  22. SEROQUEL [Suspect]
     Active Substance: QUETIAPINE FUMARATE
     Indication: SLEEP DISORDER
     Dosage: UNSPECIFIED,100 MG, ONE TO TWO TABLETS EVERY NIGHT AT BEDTIME
     Route: 048
     Dates: start: 20130810, end: 20131009
  23. SEROQUEL [Suspect]
     Active Substance: QUETIAPINE FUMARATE
     Indication: BIPOLAR II DISORDER
     Dosage: GENERIC
     Route: 048
     Dates: end: 20140214
  24. SEROQUEL [Suspect]
     Active Substance: QUETIAPINE FUMARATE
     Indication: SLEEP DISORDER
     Dosage: GENERIC 400 MG PER DAY
     Route: 048
     Dates: start: 2014
  25. AMBIEN [Concomitant]
     Active Substance: ZOLPIDEM TARTRATE

REACTIONS (29)
  - Muscle spasms [Unknown]
  - Drug ineffective [Unknown]
  - Abdominal pain [Unknown]
  - Gastrointestinal disorder [Unknown]
  - Insomnia [Unknown]
  - Gastrointestinal pain [Unknown]
  - Weight decreased [Unknown]
  - Activities of daily living impaired [Unknown]
  - Blood cholesterol increased [Unknown]
  - Duodenitis [Unknown]
  - Weight increased [Unknown]
  - Exposure during pregnancy [Unknown]
  - Cholecystitis [Unknown]
  - Gastritis [Unknown]
  - Weight loss poor [Unknown]
  - Depression [Unknown]
  - Hyperlipidaemia [Unknown]
  - Obesity [Unknown]
  - Tearfulness [Unknown]
  - Confusional state [Unknown]
  - Abdominal discomfort [Recovered/Resolved]
  - Post-traumatic stress disorder [Unknown]
  - Panic attack [Recovering/Resolving]
  - Vomiting [Unknown]
  - Irritability [Unknown]
  - Suicidal ideation [Unknown]
  - Gastrointestinal haemorrhage [Unknown]
  - Nausea [Unknown]
  - Anxiety [Recovering/Resolving]

NARRATIVE: CASE EVENT DATE: 2009
